FAERS Safety Report 8469381 (Version 3)
Quarter: 2012Q4

REPORT INFORMATION
  Report Type: 
  Country: SE (occurrence: SE)
  Receive Date: 20120321
  Receipt Date: 20121207
  Transmission Date: 20130627
  Serious: Yes (Other)
  Sender: FDA-Public Use
  Company Number: PHHY2012SE022824

PATIENT
  Age: 55 Year
  Sex: Female
  Weight: 66 kg

DRUGS (6)
  1. LEPONEX [Suspect]
  2. CLOZAPINE [Suspect]
     Dosage: 50 mg, UNK
  3. CLOZAPINE ACTAVIS [Suspect]
     Dosage: 500 mg, 200 mg in morning and 300 mg in evening
  4. LEVAXIN [Concomitant]
  5. LITHIONIT [Concomitant]
  6. CITALOPRAM [Concomitant]

REACTIONS (4)
  - Affective disorder [Recovered/Resolved]
  - Aggression [Recovered/Resolved]
  - Leukopenia [Recovered/Resolved]
  - Blood pressure systolic increased [Recovered/Resolved]
